FAERS Safety Report 12404353 (Version 1)
Quarter: 2016Q2

REPORT INFORMATION
  Report Type: Report from Study
  Country: DE (occurrence: DE)
  Receive Date: 20160525
  Receipt Date: 20160525
  Transmission Date: 20160815
  Serious: Yes (Hospitalization, Other)
  Sender: FDA-Public Use
  Company Number: DE-ABBVIE-16K-062-1633383-00

PATIENT
  Sex: Female

DRUGS (2)
  1. HUMIRA [Suspect]
     Active Substance: ADALIMUMAB
     Route: 058
     Dates: start: 20160422
  2. HUMIRA [Suspect]
     Active Substance: ADALIMUMAB
     Indication: COLITIS ULCERATIVE
     Route: 058
     Dates: start: 20150717, end: 20160331

REACTIONS (4)
  - Dermatitis [Recovering/Resolving]
  - Subcutaneous abscess [Recovering/Resolving]
  - Post procedural complication [Unknown]
  - Impaired healing [Recovering/Resolving]

NARRATIVE: CASE EVENT DATE: 2016
